FAERS Safety Report 21715955 (Version 1)
Quarter: 2022Q4

REPORT INFORMATION
  Report Type: Spontaneous
  Country: US (occurrence: None)
  Receive Date: 20221210
  Receipt Date: 20221210
  Transmission Date: 20230112
  Serious: Yes (Other)
  Sender: FDA-Public Use
  Company Number: None

PATIENT
  Age: 37 Year
  Sex: Female
  Weight: 85.28 kg

DRUGS (1)
  1. PANZYGA [Suspect]
     Active Substance: HUMAN IMMUNOGLOBULIN G
     Route: 041
     Dates: start: 20221208, end: 20221210

REACTIONS (4)
  - Nausea [None]
  - Dizziness [None]
  - Drug ineffective [None]
  - Therapy interrupted [None]

NARRATIVE: CASE EVENT DATE: 20221210
